FAERS Safety Report 6034821-9 (Version None)
Quarter: 2009Q1

REPORT INFORMATION
  Report Type: 
  Country: None (occurrence: None)
  Receive Date: 20090112
  Receipt Date: 20081231
  Transmission Date: 20090719
  Serious: Yes (Life-Threatening)
  Sender: FDA-Public Use
  Company Number: GB-PFIZER INC-2009150739

PATIENT

DRUGS (5)
  1. CHAMPIX [Suspect]
     Dosage: 1 MG, UNK
     Route: 048
     Dates: start: 20081114, end: 20081209
  2. AMOXICILLIN TRIHYDRATE [Concomitant]
     Indication: BRONCHITIS
     Dosage: 500 MG, 3X/DAY
     Route: 048
     Dates: start: 20081107, end: 20081114
  3. INSULIN GLARGINE [Concomitant]
     Dosage: 100 IU, UNK
     Route: 058
     Dates: start: 20030917
  4. NOVORAPID [Concomitant]
     Dosage: 106 IU, UNK
     Route: 058
     Dates: start: 20021121
  5. SALBUTAMOL SULFATE [Concomitant]
     Indication: BRONCHITIS
     Dosage: 200 UG, AS NEEDED
     Route: 055
     Dates: start: 20081107, end: 20081114

REACTIONS (1)
  - DIABETES MELLITUS INADEQUATE CONTROL [None]
